FAERS Safety Report 15360511 (Version 1)
Quarter: 2018Q3

REPORT INFORMATION
  Report Type: Spontaneous
  Country: US (occurrence: US)
  Receive Date: 20180831
  Receipt Date: 20180831
  Transmission Date: 20181010
  Serious: Yes (Other)
  Sender: FDA-Public Use
  Company Number: None

PATIENT
  Age: 51 Year
  Sex: Female
  Weight: 101.25 kg

DRUGS (4)
  1. L?THYROXINE (THYROID) [Concomitant]
  2. POLYSORBATE [Suspect]
     Active Substance: POLYSORBATE
     Indication: PNEUMONIA
     Dates: start: 20150105
  3. INSULIN [Concomitant]
     Active Substance: INSULIN NOS
  4. DIOVAN [Concomitant]
     Active Substance: VALSARTAN

REACTIONS (2)
  - Product formulation issue [None]
  - Anaphylactic reaction [None]

NARRATIVE: CASE EVENT DATE: 20150105
